FAERS Safety Report 8290168-1 (Version None)
Quarter: 2012Q2

REPORT INFORMATION
  Report Type: 
  Country: None (occurrence: None)
  Receive Date: 20120417
  Receipt Date: 20120411
  Transmission Date: 20120825
  Serious: Yes (Other)
  Sender: FDA-Public Use
  Company Number: CA-PURDUE-CAN-2012-0002846

PATIENT
  Age: 71 Year
  Sex: Male

DRUGS (15)
  1. MORPHINE SULFATE [Suspect]
     Dosage: 60MG , BID
     Route: 048
  2. L-CARNITINE [Concomitant]
     Indication: PRODUCT USED FOR UNKNOWN INDICATION
     Dosage: UNK
     Route: 065
  3. MORPHINE SULFATE [Suspect]
     Dosage: 30 MG, DAILY
     Route: 048
  4. MORPHINE SULFATE [Suspect]
     Dosage: 25 MG, BID
     Route: 048
  5. MORPHINE SULFATE [Suspect]
     Dosage: 100MG, BID
     Route: 048
  6. MORPHINE SULFATE [Suspect]
     Dosage: 60MG, BID
     Route: 048
  7. ALPHA LIPOIC ACID [Concomitant]
     Indication: PRODUCT USED FOR UNKNOWN INDICATION
     Dosage: UNK
     Route: 065
  8. MORPHINE SULFATE [Suspect]
     Indication: PRODUCT USED FOR UNKNOWN INDICATION
     Dosage: 10 MG, BID
     Route: 048
  9. MORPHINE SULFATE [Suspect]
     Indication: PRODUCT USED FOR UNKNOWN INDICATION
     Dosage: 30 MG, BID
     Route: 048
  10. MORPHINE SULFATE [Suspect]
     Dosage: 105MG, DAILY
     Route: 048
  11. MORPHINE SULFATE [Suspect]
     Dosage: 10 MG, DAILY
     Route: 048
  12. INDOMETHACIN [Concomitant]
     Indication: PRODUCT USED FOR UNKNOWN INDICATION
     Dosage: UNK
     Route: 065
  13. VITAMIN B1 TAB [Concomitant]
     Indication: PRODUCT USED FOR UNKNOWN INDICATION
     Dosage: UNK
     Route: 065
  14. OXYCODONE HCL [Suspect]
     Indication: PRODUCT USED FOR UNKNOWN INDICATION
     Dosage: 5 MG, DAILY
     Route: 048
  15. STUDY DRUG [Concomitant]
     Indication: PRODUCT USED FOR UNKNOWN INDICATION
     Dosage: UNK
     Route: 065

REACTIONS (9)
  - SOMNOLENCE [None]
  - ASTHENIA [None]
  - RESTLESSNESS [None]
  - CONSTIPATION [None]
  - OVERDOSE [None]
  - MYOCLONUS [None]
  - TENDERNESS [None]
  - ANAEMIA [None]
  - WEIGHT DECREASED [None]
